FAERS Safety Report 7156358-6 (Version None)
Quarter: 2010Q4

REPORT INFORMATION
  Report Type: 
  Country: None (occurrence: None)
  Receive Date: 20101214
  Receipt Date: 20101203
  Transmission Date: 20110411
  Serious: Yes (Hospitalization, Disabling)
  Sender: FDA-Public Use
  Company Number: HU-AMGEN-HUNNI2010002965

PATIENT

DRUGS (6)
  1. DARBEPOETIN ALFA [Suspect]
     Indication: RENAL FAILURE CHRONIC
     Dosage: 20 A?G, Q2WK
     Route: 058
     Dates: start: 20100331
  2. SABRIL [Concomitant]
  3. VALPROAT [Concomitant]
  4. RAMIPRIL [Concomitant]
  5. SORBIFER                           /00023503/ [Concomitant]
  6. NEORECORMON [Concomitant]

REACTIONS (24)
  - ANAEMIA [None]
  - BLOOD ALKALINE PHOSPHATASE INCREASED [None]
  - BLOOD AMYLASE INCREASED [None]
  - BLOOD CREATINE PHOSPHOKINASE INCREASED [None]
  - BLOOD LACTATE DEHYDROGENASE INCREASED [None]
  - CARDIOVASCULAR DISORDER [None]
  - DIALYSIS [None]
  - DISEASE PROGRESSION [None]
  - FOCAL SEGMENTAL GLOMERULOSCLEROSIS [None]
  - GASTROENTERITIS [None]
  - HYPERKALAEMIA [None]
  - HYPERVOLAEMIA [None]
  - METABOLIC ACIDOSIS [None]
  - MUSCLE SPASMS [None]
  - OLIGURIA [None]
  - PALLOR [None]
  - PERICARDIAL EFFUSION [None]
  - PLEURAL EFFUSION [None]
  - PROTHROMBIN TIME PROLONGED [None]
  - RENAL FAILURE ACUTE [None]
  - RENAL FAILURE CHRONIC [None]
  - RESPIRATORY FAILURE [None]
  - ROTAVIRUS TEST POSITIVE [None]
  - SOMNOLENCE [None]
